FAERS Safety Report 18187856 (Version 2)
Quarter: 2020Q4

REPORT INFORMATION
  Report Type: Report from Study
  Country: US (occurrence: US)
  Receive Date: 20200824
  Receipt Date: 20201104
  Transmission Date: 20210113
  Serious: No
  Sender: FDA-Public Use
  Company Number: US-SA-2020SA225045

PATIENT

DRUGS (2)
  1. DUPILUMAB [Suspect]
     Active Substance: DUPILUMAB
     Indication: DERMATITIS ATOPIC
     Dosage: 600 MG, 1X
     Route: 058
     Dates: start: 20200814, end: 20200814
  2. DUPILUMAB [Suspect]
     Active Substance: DUPILUMAB
     Dosage: 300 MG, QOW
     Route: 058
     Dates: start: 202008

REACTIONS (7)
  - Pruritus [Unknown]
  - Scab [Unknown]
  - Drug ineffective [Unknown]
  - Pain [Unknown]
  - Eczema [Unknown]
  - Skin burning sensation [Unknown]
  - Skin ulcer [Unknown]

NARRATIVE: CASE EVENT DATE: 2020
